FAERS Safety Report 4611745-2 (Version None)
Quarter: 2005Q2

REPORT INFORMATION
  Report Type: 
  Country: None (occurrence: None)
  Receive Date: 20050311
  Receipt Date: 20041209
  Transmission Date: 20051028
  Serious: No
  Sender: FDA-Public Use
  Company Number: 2004-BP-13858BP

PATIENT
  Age: 55 Year
  Sex: Female
  Weight: 75 kg

DRUGS (10)
  1. SPIRIVA [Suspect]
     Indication: CHRONIC OBSTRUCTIVE PULMONARY DISEASE
     Dosage: 36 MCG (18 MCG, 1 PUFF BID), IH
     Route: 055
     Dates: start: 20040809, end: 20040830
  2. .. [Suspect]
  3. PROZAC [Concomitant]
  4. THEOPHYLLINE [Concomitant]
  5. ACTOS [Concomitant]
  6. NEXIUM [Concomitant]
  7. ADVAIR DISKUS 100/50 [Concomitant]
  8. ALBUTEROL [Concomitant]
  9. VIOXX [Concomitant]
  10. ESTRATEST [Concomitant]

REACTIONS (2)
  - EPISTAXIS [None]
  - HAEMOPTYSIS [None]
